FAERS Safety Report 8036580-7 (Version None)
Quarter: 2011Q4

REPORT INFORMATION
  Report Type: 
  Country: None (occurrence: None)
  Receive Date: 20111202
  Receipt Date: 20110803
  Transmission Date: 20120403
  Serious: Yes (Other)
  Sender: FDA-Public Use
  Company Number: PHEH2011US00932

PATIENT
  Age: 58 Year
  Sex: Male

DRUGS (4)
  1. FANAPT [Suspect]
     Dosage: 8 MG, BID, ORAL
     Route: 048
     Dates: start: 20101201, end: 20110301
  2. OLANZAPINE [Concomitant]
  3. DEPOT [Concomitant]
  4. LUVOX [Concomitant]

REACTIONS (1)
  - ORTHOSTATIC HYPOTENSION [None]
